FAERS Safety Report 8466459-8 (Version None)
Quarter: 2012Q2

REPORT INFORMATION
  Report Type: 
  Country: None (occurrence: None)
  Receive Date: 20120626
  Receipt Date: 20120621
  Transmission Date: 20120825
  Serious: Yes (Death, Life-Threatening, Hospitalization)
  Sender: FDA-Public Use
  Company Number: US-CELGENEUS-163-21880-12050340

PATIENT
  Sex: Male
  Weight: 70.6 kg

DRUGS (6)
  1. DEXAMETHASONE [Concomitant]
     Route: 065
     Dates: start: 20110927
  2. REVLIMID [Suspect]
     Dosage: 15 MILLIGRAM
     Route: 048
     Dates: start: 20110927
  3. REVLIMID [Suspect]
     Dosage: 10 MILLIGRAM
     Route: 048
     Dates: start: 20111108, end: 20120109
  4. PROCRIT [Concomitant]
     Route: 065
  5. REVLIMID [Suspect]
     Dosage: 10 MILLIGRAM
     Route: 048
     Dates: start: 20110901
  6. REVLIMID [Suspect]
     Dosage: 5 MILLIGRAM
     Route: 048
     Dates: start: 20120110, end: 20120502

REACTIONS (6)
  - B-CELL SMALL LYMPHOCYTIC LYMPHOMA REFRACTORY [None]
  - PNEUMONIA FUNGAL [None]
  - DYSPNOEA [None]
  - RESPIRATORY SYNCYTIAL VIRUS INFECTION [None]
  - HAEMOLYTIC TRANSFUSION REACTION [None]
  - INFECTION [None]
